FAERS Safety Report 15962654 (Version 1)
Quarter: 2019Q1

REPORT INFORMATION
  Report Type: Spontaneous
  Country: US (occurrence: US)
  Receive Date: 20190214
  Receipt Date: 20190214
  Transmission Date: 20190417
  Serious: Yes (Hospitalization)
  Sender: FDA-Public Use
  Company Number: US-CELGENEUS-USA-20190203908

PATIENT
  Age: 63 Year
  Sex: Male

DRUGS (2)
  1. IDHIFA [Suspect]
     Active Substance: ENASIDENIB MESYLATE
     Indication: OFF LABEL USE
  2. IDHIFA [Suspect]
     Active Substance: ENASIDENIB MESYLATE
     Indication: HYPERLIPIDAEMIA
     Dosage: 100 MILLIGRAM
     Route: 048
     Dates: start: 20181218

REACTIONS (1)
  - Pyrexia [Recovered/Resolved]

NARRATIVE: CASE EVENT DATE: 20190206
